FAERS Safety Report 20375129 (Version 1)
Quarter: 2022Q1

REPORT INFORMATION
  Report Type: Spontaneous
  Country: US (occurrence: None)
  Receive Date: 20220124
  Receipt Date: 20220124
  Transmission Date: 20220423
  Serious: No
  Sender: FDA-Public Use
  Company Number: None

PATIENT
  Age: 41 Year
  Sex: Male

DRUGS (1)
  1. ETOPOSIDE [Suspect]
     Active Substance: ETOPOSIDE
     Route: 041

REACTIONS (6)
  - Infusion related reaction [None]
  - Dyspnoea [None]
  - Chest discomfort [None]
  - Flushing [None]
  - Therapy cessation [None]
  - Refusal of treatment by patient [None]

NARRATIVE: CASE EVENT DATE: 20220121
